FAERS Safety Report 9045138 (Version 1)
Quarter: 2013Q1

REPORT INFORMATION
  Report Type: Report from Study
  Country: US (occurrence: US)
  Receive Date: 20130130
  Receipt Date: 20130130
  Transmission Date: 20140127
  Serious: Yes (Other)
  Sender: FDA-Public Use
  Company Number: US-ABBOTT-12P-163-0969262-00

PATIENT
  Age: 67 Year
  Sex: Male

DRUGS (4)
  1. HUMIRA 40 MG/0.8 ML PEN [Suspect]
     Indication: CROHN^S DISEASE
  2. CLEMASTINE [Concomitant]
     Indication: RASH
  3. NIASPAN [Concomitant]
     Indication: BLOOD CHOLESTEROL
  4. TRICOR [Concomitant]
     Indication: BLOOD CHOLESTEROL

REACTIONS (8)
  - Joint injury [Recovering/Resolving]
  - Fall [Recovering/Resolving]
  - Injection site mass [Unknown]
  - Device malfunction [Unknown]
  - Incorrect dose administered [Unknown]
  - Device malfunction [Unknown]
  - Incorrect dose administered [Unknown]
  - Hypertension [Unknown]
